FAERS Safety Report 9507875 (Version 1)
Quarter: 2013Q4

REPORT INFORMATION
  Report Type: Spontaneous
  Country: US (occurrence: None)
  Receive Date: 20130906
  Receipt Date: 20130906
  Transmission Date: 20140711
  Serious: No
  Sender: FDA-Public Use
  Company Number: None

PATIENT
  Age: 53 Year
  Sex: Female
  Weight: 48.99 kg

DRUGS (2)
  1. VANCOMYCIN 5 GRAM/ HOSPIRA [Suspect]
     Indication: WOUND INFECTION
     Dosage: 1250MG  IV EVERY 24 HOURS
     Route: 042
     Dates: start: 20130628, end: 20130823
  2. VANCOMYCIN 1 GRAM/ HOSPIRA [Suspect]

REACTIONS (1)
  - Rash [None]
